FAERS Safety Report 5144766-4 (Version None)
Quarter: 2006Q4

REPORT INFORMATION
  Report Type: 
  Country: None (occurrence: None)
  Receive Date: 20060912
  Receipt Date: 20051213
  Transmission Date: 20070319
  Serious: Yes (Hospitalization)
  Sender: FDA-Public Use
  Company Number: 1-13447016

PATIENT
  Age: 11 Year
  Sex: Male
  Weight: 46.8 kg

DRUGS (5)
  1. BACTRIM DS [Suspect]
     Indication: CELLULITIS
     Dosage: ORAL
     Route: 048
     Dates: start: 20050910, end: 20050920
  2. KEFLEX [Concomitant]
  3. BETADINE [Concomitant]
  4. OXACILLIN [Concomitant]
  5. CLINDAMYCIN [Concomitant]

REACTIONS (14)
  - ABDOMINAL PAIN [None]
  - CHEST DISCOMFORT [None]
  - CLOSTRIDIUM DIFFICILE TOXIN TEST POSITIVE [None]
  - DIARRHOEA [None]
  - DIZZINESS [None]
  - HEADACHE [None]
  - MYALGIA [None]
  - NAUSEA [None]
  - OCULAR HYPERAEMIA [None]
  - PRURITUS [None]
  - PYREXIA [None]
  - RASH [None]
  - STRESS [None]
  - VOMITING [None]
